FAERS Safety Report 4761084-4 (Version None)
Quarter: 2005Q3

REPORT INFORMATION
  Report Type: 
  Country: None (occurrence: None)
  Receive Date: 20050901
  Receipt Date: 20050727
  Transmission Date: 20060218
  Serious: Yes (Hospitalization)
  Sender: FDA-Public Use
  Company Number: 2005119809

PATIENT
  Age: 73 Year
  Sex: Male

DRUGS (1)
  1. CAMPTOSAR [Suspect]
     Indication: ILL-DEFINED DISORDER
     Dosage: 90 MG, INTRAVENOUS
     Route: 042
     Dates: start: 20041004, end: 20050222

REACTIONS (1)
  - LARGE INTESTINE PERFORATION [None]
